FAERS Safety Report 22280897 (Version 10)
Quarter: 2024Q2

REPORT INFORMATION
  Report Type: Report from Study
  Country: US (occurrence: US)
  Receive Date: 20230503
  Receipt Date: 20240507
  Transmission Date: 20240716
  Serious: Yes (Hospitalization, Other)
  Sender: FDA-Public Use
  Company Number: US-ABBVIE-4743253

PATIENT
  Sex: Female

DRUGS (7)
  1. VENCLEXTA [Suspect]
     Active Substance: VENETOCLAX
     Indication: Chronic lymphocytic leukaemia
     Dosage: DRUG END DATE: APR 2023
     Route: 048
     Dates: start: 20230407
  2. VENCLEXTA [Suspect]
     Active Substance: VENETOCLAX
     Indication: Chronic lymphocytic leukaemia
     Dosage: FORM STRENGTH: 200 MG
     Route: 048
     Dates: start: 20230410
  3. VENCLEXTA [Suspect]
     Active Substance: VENETOCLAX
     Indication: Chronic lymphocytic leukaemia
     Route: 048
     Dates: start: 202304, end: 202304
  4. VENCLEXTA [Suspect]
     Active Substance: VENETOCLAX
     Indication: Chronic lymphocytic leukaemia
     Dosage: TIME INTERVAL: 0.33333333 DAYS
     Route: 048
  5. VENCLEXTA [Suspect]
     Active Substance: VENETOCLAX
     Indication: Chronic lymphocytic leukaemia
     Route: 048
     Dates: start: 20230410
  6. LEXAPRO [Concomitant]
     Active Substance: ESCITALOPRAM OXALATE
     Indication: Product used for unknown indication
  7. GABAPENTIN [Concomitant]
     Active Substance: GABAPENTIN
     Indication: Product used for unknown indication

REACTIONS (18)
  - Pleural effusion [Not Recovered/Not Resolved]
  - White blood cell count decreased [Unknown]
  - Weight decreased [Unknown]
  - Mental impairment [Unknown]
  - Oedema peripheral [Unknown]
  - Abdominal mass [Unknown]
  - Increased appetite [Recovering/Resolving]
  - Fungal infection [Unknown]
  - Anger [Unknown]
  - Medical device site infection [Unknown]
  - Depression [Unknown]
  - Memory impairment [Unknown]
  - Infection [Unknown]
  - Emotional disorder [Unknown]
  - Neoplasm [Unknown]
  - Mood swings [Unknown]
  - Blood pressure increased [Unknown]
  - Flatulence [Unknown]

NARRATIVE: CASE EVENT DATE: 20230101
